FAERS Safety Report 19062427 (Version 1)
Quarter: 2021Q1

REPORT INFORMATION
  Report Type: Spontaneous
  Country: US (occurrence: US)
  Receive Date: 20210326
  Receipt Date: 20210326
  Transmission Date: 20210420
  Serious: No
  Sender: FDA-Public Use
  Company Number: None

PATIENT
  Sex: Female

DRUGS (1)
  1. ENOXAPARIN [Suspect]
     Active Substance: ENOXAPARIN
     Indication: THROMBOSIS PROPHYLAXIS

REACTIONS (4)
  - Device malfunction [None]
  - Limb injury [None]
  - Injury associated with device [None]
  - Needle issue [None]

NARRATIVE: CASE EVENT DATE: 20210324
